FAERS Safety Report 8411395 (Version 2)
Quarter: 2013Q2

REPORT INFORMATION
  Report Type: Spontaneous
  Country: US (occurrence: None)
  Receive Date: 20111227
  Receipt Date: 20130107
  Transmission Date: 20140414
  Serious: No
  Sender: FDA-Public Use
  Company Number: PHEH2011US03101

PATIENT
  Sex: Female

DRUGS (15)
  1. GILENYA [Suspect]
     Indication: MULTIPLE SCLEROSIS
     Dosage: 0.5 MG, QD, ORAL
     Route: 048
     Dates: start: 20110106
  2. ZESTRIL (LISINOPRIL)TABLET 40 MG [Concomitant]
  3. ASPIRIN (ACETYLSALICYLIC ACID) [Concomitant]
  4. VICODIN ES (HYDROCODONE BITARTRATE, PARACETAMOL) [Concomitant]
  5. NEUTRONIN (GABAPENTIN) [Concomitant]
  6. HYGROTON (CHLORTALIDONE) [Concomitant]
  7. PROCARDIA XL (NIFEDIPINE) [Concomitant]
  8. AZELASTINE (AZELASTINE)NASAL DROPS [Concomitant]
  9. CITRULCEL (METHYLCELLULOSE) [Concomitant]
  10. SCOPOLAMINE (HYOSINE) [Concomitant]
  11. FLONASE (FLUTICASONE PROPIONATE) [Concomitant]
  12. ZYRTEC (CETIRIZINE HYDROCHLORIDE) [Concomitant]
  13. GLUCOSAMINE/CHONDROITIN/MSM (CHRONDROITIN, GLUCOSAMINE, METHYLSULFONYMETHANE)CAPSULE [Concomitant]
  14. CEREFOLIN (CALCIUM-METHYLFOLATE, CYANOCOBALMIN, PYROXINE HYDROCHLORIDE, RIBOFLAVIN) [Concomitant]
  15. MULTIVITAMIN AND MINERAL SUPPLEMET (MINERALS NOS, VITAMINS NOS)TABLET [Concomitant]

REACTIONS (14)
  - RED BLOOD CELL COUNT DECREASED [None]
  - BLOOD PRESSURE INCREASED [None]
  - Gastrooesophageal reflux disease [None]
  - Mitral valve disease [None]
  - Spinal osteoarthritis [None]
  - Raynaud^s phenomenon [None]
  - Joint swelling [None]
  - Neck pain [None]
  - Livedo reticularis [None]
  - Oedema peripheral [None]
  - Rash [None]
  - Limb injury [None]
  - Neutropenia [None]
  - Lymphopenia [None]
